FAERS Safety Report 6286596-6 (Version None)
Quarter: 2009Q3

REPORT INFORMATION
  Report Type: 
  Country: None (occurrence: None)
  Receive Date: 20090728
  Receipt Date: 20090716
  Transmission Date: 20100115
  Serious: Yes (Other)
  Sender: FDA-Public Use
  Company Number: PHHY2009DE29356

PATIENT
  Age: 20 Year
  Sex: Female

DRUGS (7)
  1. IMATINIB MESYLATE [Suspect]
     Indication: ACUTE LYMPHOCYTIC LEUKAEMIA
     Dosage: 400 MG/DAY
  2. CHEMOTHERAPEUTICS,OTHER [Concomitant]
  3. RADIATION [Concomitant]
     Indication: PROPHYLAXIS
     Dosage: 16 GY, UNK
  4. CYCLOPHOSPHAMIDE [Concomitant]
     Dosage: 1670 MG, UNK
  5. CYTARABINE [Concomitant]
     Dosage: 125 MG, UNK
  6. MERCAPTOPURINE [Concomitant]
     Dosage: 100 MG, UNK
  7. METHOTREXATE [Concomitant]
     Dosage: 15 MG, UNK
     Route: 037

REACTIONS (10)
  - ABNORMAL BEHAVIOUR [None]
  - AMNESIA [None]
  - CNS VENTRICULITIS [None]
  - EPILEPSY [None]
  - HYDROCEPHALUS [None]
  - LEARNING DISORDER [None]
  - MEMORY IMPAIRMENT [None]
  - NEUROTOXICITY [None]
  - SOMNOLENCE [None]
  - VENTRICULO-PERITONEAL SHUNT [None]
